FAERS Safety Report 9233899 (Version 1)
Quarter: 2013Q2

REPORT INFORMATION
  Report Type: Spontaneous
  Country: US (occurrence: US)
  Receive Date: 20130416
  Receipt Date: 20130416
  Transmission Date: 20140414
  Serious: No
  Sender: FDA-Public Use
  Company Number: US-PFIZER INC-2013117896

PATIENT
  Sex: Female

DRUGS (3)
  1. PRISTIQ [Suspect]
     Dosage: UNK
     Dates: start: 2013
  2. SAM-E [Interacting]
     Dosage: UNK
  3. ST. JOHN^S WORT [Interacting]
     Dosage: UNK

REACTIONS (5)
  - Drug interaction [Unknown]
  - Agitation [Unknown]
  - Anxiety [Unknown]
  - Feeling abnormal [Unknown]
  - Decreased appetite [Unknown]
